FAERS Safety Report 25902132 (Version 1)
Quarter: 2025Q4

REPORT INFORMATION
  Report Type: Spontaneous
  Country: US (occurrence: US)
  Receive Date: 20251009
  Receipt Date: 20251009
  Transmission Date: 20260117
  Serious: No
  Sender: DR REDDYS
  Company Number: US-DRL-USA-USA/2025/09/014903

PATIENT
  Age: 29 Year
  Sex: Female

DRUGS (20)
  1. FENOFIBRATE [Suspect]
     Active Substance: FENOFIBRATE
     Indication: Familial hypertriglyceridaemia
  2. FENOFIBRATE [Suspect]
     Active Substance: FENOFIBRATE
  3. FENOFIBRATE [Suspect]
     Active Substance: FENOFIBRATE
  4. FENOFIBRATE [Suspect]
     Active Substance: FENOFIBRATE
  5. FENOFIBRATE [Suspect]
     Active Substance: FENOFIBRATE
  6. FENOFIBRATE [Suspect]
     Active Substance: FENOFIBRATE
  7. FENOFIBRATE [Suspect]
     Active Substance: FENOFIBRATE
  8. FENOFIBRATE [Suspect]
     Active Substance: FENOFIBRATE
  9. FENOFIBRATE [Suspect]
     Active Substance: FENOFIBRATE
  10. FENOFIBRATE [Suspect]
     Active Substance: FENOFIBRATE
  11. FENOFIBRATE [Suspect]
     Active Substance: FENOFIBRATE
  12. METFORMIN [Suspect]
     Active Substance: METFORMIN HYDROCHLORIDE
     Indication: Glucose tolerance impaired
  13. NIACIN [Suspect]
     Active Substance: NIACIN
     Indication: Familial hypertriglyceridaemia
  14. NIACIN [Suspect]
     Active Substance: NIACIN
  15. NIACIN [Suspect]
     Active Substance: NIACIN
  16. NIACIN [Suspect]
     Active Substance: NIACIN
  17. NIACIN [Suspect]
     Active Substance: NIACIN
  18. NIACIN [Suspect]
     Active Substance: NIACIN
  19. NIACIN [Suspect]
     Active Substance: NIACIN
  20. NIACIN [Suspect]
     Active Substance: NIACIN

REACTIONS (1)
  - Exposure during pregnancy [Unknown]
